FAERS Safety Report 17350933 (Version 1)
Quarter: 2020Q1

REPORT INFORMATION
  Report Type: Spontaneous
  Country: US (occurrence: US)
  Receive Date: 20200130
  Receipt Date: 20200130
  Transmission Date: 20200409
  Serious: No
  Sender: FDA-Public Use
  Company Number: US-HORIZON-ACT-0064-2020

PATIENT
  Age: 10 Year
  Sex: Male

DRUGS (4)
  1. BACTRIM [Concomitant]
     Active Substance: SULFAMETHOXAZOLE\TRIMETHOPRIM
  2. VORICONAZOLE. [Concomitant]
     Active Substance: VORICONAZOLE
  3. ACTIMMUNE [Suspect]
     Active Substance: INTERFERON GAMMA-1B
     Indication: CHRONIC GRANULOMATOUS DISEASE
     Dosage: 30MCG, 0.15ML THREE TIMES A WEEK
     Dates: start: 20171113
  4. SPORANOX [Concomitant]
     Active Substance: ITRACONAZOLE

REACTIONS (1)
  - Rash [Unknown]
